FAERS Safety Report 5720456-1 (Version None)
Quarter: 2008Q2

REPORT INFORMATION
  Report Type: 
  Country: None (occurrence: None)
  Receive Date: 20080423
  Receipt Date: 20070720
  Transmission Date: 20081010
  Serious: Yes (Hospitalization)
  Sender: FDA-Public Use
  Company Number: 240249

PATIENT
  Age: 72 Year
  Sex: Male
  Weight: 112 kg

DRUGS (24)
  1. AVASTIN [Suspect]
     Indication: PROSTATE CANCER
     Dosage: 800 MG, Q6W, INTRAVENOUS; 15 MG/KG, INTRAVENOUS
     Route: 042
     Dates: start: 20060405, end: 20070316
  2. AVASTIN [Suspect]
     Indication: PROSTATE CANCER
     Dosage: 800 MG, Q6W, INTRAVENOUS; 15 MG/KG, INTRAVENOUS
     Route: 042
     Dates: start: 20070301
  3. CELEBRA (CELECOXIB) [Concomitant]
  4. CYTOXAN [Concomitant]
  5. LIPITOR [Concomitant]
  6. THALIDOMIDE [Concomitant]
  7. ESTROGEN (ESTROGEN NOS) [Concomitant]
  8. INNOHEP [Concomitant]
  9. ACIPHEX [Concomitant]
  10. ALDACTONE [Concomitant]
  11. BENICAR [Concomitant]
  12. CALCITRIOL [Concomitant]
  13. CARDIZEM [Concomitant]
  14. CLONIDINE [Concomitant]
  15. CYTADREN (AMINOGLUTETHIMIDE) [Concomitant]
  16. LEXAPRO [Concomitant]
  17. NIFEDICAL (NIFEDIPINE) [Concomitant]
  18. PROSCAR [Concomitant]
  19. REVLIMID [Concomitant]
  20. SYNTHROID [Concomitant]
  21. EMCYT (ESTRAMUSTINE) [Concomitant]
  22. DECADRON [Concomitant]
  23. ALDOMET [Concomitant]
  24. TIGAN [Concomitant]

REACTIONS (1)
  - HEPATIC HAEMATOMA [None]
